FAERS Safety Report 16430867 (Version 1)
Quarter: 2019Q3

REPORT INFORMATION
  Report Type: Spontaneous
  Country: US (occurrence: US)
  Receive Date: 20190613
  Receipt Date: 20190613
  Transmission Date: 20191004
  Serious: Yes (Other)
  Sender: FDA-Public Use
  Company Number: None

PATIENT
  Age: 37 Year
  Sex: Female
  Weight: 81 kg

DRUGS (1)
  1. FREMANEZUMAB-VFRM [Suspect]
     Active Substance: FREMANEZUMAB-VFRM
     Indication: MIGRAINE
     Dosage: ?          OTHER FREQUENCY:MONTHLY;?
     Route: 058
     Dates: end: 20190225

REACTIONS (7)
  - Abdominal pain [None]
  - Chest pain [None]
  - Cough [None]
  - Diarrhoea [None]
  - Rash [None]
  - Injection site pruritus [None]
  - Dysphagia [None]

NARRATIVE: CASE EVENT DATE: 20190320
